FAERS Safety Report 16290049 (Version 1)
Quarter: 2019Q2

REPORT INFORMATION
  Report Type: Spontaneous
  Country: US (occurrence: US)
  Receive Date: 20190509
  Receipt Date: 20190509
  Transmission Date: 20190711
  Serious: No
  Sender: FDA-Public Use
  Company Number: US-009507513-1905USA003132

PATIENT
  Sex: Female

DRUGS (1)
  1. NUVARING [Suspect]
     Active Substance: ETHINYL ESTRADIOL\ETONOGESTREL
     Dosage: 1 RING VAGINALLY MONTHLY FOR 3 WEEKS
     Route: 067

REACTIONS (2)
  - Medical device site discomfort [Unknown]
  - Device physical property issue [Unknown]

NARRATIVE: CASE EVENT DATE: 20190505
